FAERS Safety Report 9342485 (Version 1)
Quarter: 2013Q2

REPORT INFORMATION
  Report Type: Spontaneous
  Country: US (occurrence: US)
  Receive Date: 20130611
  Receipt Date: 20130611
  Transmission Date: 20140414
  Serious: No
  Sender: FDA-Public Use
  Company Number: US-BAYER-2013-066775

PATIENT
  Sex: Male

DRUGS (2)
  1. CIPRO [Suspect]
     Indication: PHARYNGEAL ERYTHEMA
     Dosage: 500 MG, UNK
     Dates: start: 201211
  2. CIPRO [Suspect]
     Indication: PHARYNGEAL OEDEMA
     Dosage: UNK
     Dates: start: 20130126

REACTIONS (6)
  - Malaise [None]
  - Peripheral coldness [None]
  - Oedema peripheral [None]
  - Joint swelling [None]
  - Pyrexia [None]
  - Dyspnoea [None]
